FAERS Safety Report 4870522-8 (Version None)
Quarter: 2005Q4

REPORT INFORMATION
  Report Type: 
  Country: None (occurrence: None)
  Receive Date: 20051228
  Receipt Date: 20051208
  Transmission Date: 20060501
  Serious: No
  Sender: FDA-Public Use
  Company Number: US200512001562

PATIENT
  Age: 46 Year
  Sex: Female

DRUGS (1)
  1. CYMBALTA [Suspect]
     Indication: MAJOR DEPRESSION
     Dosage: 60 MG, DAILY (1/D)
     Dates: start: 20041209, end: 20051001

REACTIONS (5)
  - ALANINE AMINOTRANSFERASE INCREASED [None]
  - ASPARTATE AMINOTRANSFERASE INCREASED [None]
  - BLOOD ALKALINE PHOSPHATASE INCREASED [None]
  - FALSE POSITIVE LABORATORY RESULT [None]
  - HEPATITIS C ANTIBODY [None]
